FAERS Safety Report 12887185 (Version 1)
Quarter: 2016Q4

REPORT INFORMATION
  Report Type: Spontaneous
  Country: US (occurrence: US)
  Receive Date: 20161026
  Receipt Date: 20161026
  Transmission Date: 20170207
  Serious: No
  Sender: FDA-Public Use
  Company Number: US-ABBVIE-16P-163-1744393-00

PATIENT
  Sex: Female

DRUGS (1)
  1. LUPRON DEPOT [Suspect]
     Active Substance: LEUPROLIDE ACETATE
     Indication: PRODUCT USED FOR UNKNOWN INDICATION
     Route: 050

REACTIONS (8)
  - Mental fatigue [Unknown]
  - Fatigue [Unknown]
  - Hypokinesia [Unknown]
  - Pain [Unknown]
  - Discomfort [Unknown]
  - Emotional disorder [Unknown]
  - Depression [Unknown]
  - Drug ineffective [Unknown]
